FAERS Safety Report 10028723 (Version 3)
Quarter: 2014Q2

REPORT INFORMATION
  Report Type: Spontaneous
  Country: BR (occurrence: BR)
  Receive Date: 20140321
  Receipt Date: 20140613
  Transmission Date: 20141212
  Serious: Yes (Other)
  Sender: FDA-Public Use
  Company Number: PHHY2014BR033632

PATIENT
  Age: 58 Year
  Sex: Male
  Weight: 84 kg

DRUGS (8)
  1. RITALIN [Suspect]
     Indication: MEMORY IMPAIRMENT
     Dosage: 1 DF, DAILY
     Route: 048
  2. RITALIN [Suspect]
     Indication: DISTURBANCE IN ATTENTION
     Dosage: 2 OR 3 DF, WEEKLY
     Route: 048
  3. RITALIN [Suspect]
     Indication: ATTENTION DEFICIT/HYPERACTIVITY DISORDER
     Dosage: 1 OR 2 DF, WEEKLY
     Route: 048
  4. RITALIN [Suspect]
     Dosage: 2 DF PER DAY
     Route: 048
  5. AAS [Concomitant]
     Indication: COAGULOPATHY
     Dosage: 1 DF, DAILY
     Route: 048
  6. ATENOLOL [Concomitant]
     Indication: CARDIAC DISORDER
     Dosage: 0.5 DF, DAILY
     Route: 048
  7. SIMVASTATIN [Concomitant]
     Indication: CARDIAC DISORDER
     Dosage: 0.5 DF, AT NIGHT
     Route: 048
  8. OMEPRAZOLE [Concomitant]
     Indication: GASTRIC DISORDER
     Dosage: 1 DF, DAILY
     Route: 048

REACTIONS (5)
  - Infarction [Recovered/Resolved]
  - Pain [Recovering/Resolving]
  - Fatigue [Recovering/Resolving]
  - Cerebrovascular accident [Unknown]
  - Hypertension [Recovered/Resolved]
